FAERS Safety Report 8839809 (Version 1)
Quarter: 2012Q4

REPORT INFORMATION
  Report Type: 
  Country: US (occurrence: US)
  Receive Date: 20121015
  Receipt Date: 20121015
  Transmission Date: 20130627
  Serious: Yes (Life-Threatening)
  Sender: FDA-Public Use
  Company Number: US-BRISTOL-MYERS SQUIBB COMPANY-16577454

PATIENT
  Age: 37 Year
  Sex: Female

DRUGS (3)
  1. KENALOG-40 INJ [Suspect]
     Indication: PAIN IN EXTREMITY
     Route: 014
     Dates: start: 201202
  2. MARCAINE [Concomitant]
     Dosage: 0.5%
  3. XYLOCAINE [Concomitant]
     Dosage: 2 %

REACTIONS (1)
  - Anaphylactic reaction [Unknown]
